FAERS Safety Report 18377865 (Version 3)
Quarter: 2020Q4

REPORT INFORMATION
  Report Type: Spontaneous
  Country: JP (occurrence: JP)
  Receive Date: 20201013
  Receipt Date: 20201020
  Transmission Date: 20210114
  Serious: Yes (Death, Life-Threatening, Other)
  Sender: FDA-Public Use
  Company Number: JP-PFIZER INC-2020023494

PATIENT
  Age: 75 Year
  Sex: Male
  Weight: 55 kg

DRUGS (8)
  1. GEMCITABINE 200MG HOSPIRA [Suspect]
     Active Substance: GEMCITABINE HYDROCHLORIDE
     Indication: PANCREATIC CARCINOMA RECURRENT
     Dosage: 1600 MG
     Route: 041
     Dates: start: 20190327, end: 20190327
  2. MIYA-BM [Concomitant]
     Active Substance: CLOSTRIDIUM BUTYRICUM SPORES STRAIN M-55
     Dosage: 2 DF, 3X/DAY
     Route: 048
  3. GEMCITABINE 200MG HOSPIRA [Suspect]
     Active Substance: GEMCITABINE HYDROCHLORIDE
     Dosage: 1280 MG
     Route: 041
     Dates: start: 20191025, end: 20191206
  4. URSODEOXYCHOLIC ACID [Concomitant]
     Active Substance: URSODIOL
     Dosage: 100 MG, 3X/DAY
     Route: 048
  5. RABEPRAZOLE [Concomitant]
     Active Substance: RABEPRAZOLE
     Dosage: 10 MG, 1X/DAY
     Route: 048
  6. GEMCITABINE 200MG HOSPIRA [Suspect]
     Active Substance: GEMCITABINE HYDROCHLORIDE
     Indication: PANCREATIC CARCINOMA
     Dosage: 1280 MG
     Route: 041
     Dates: start: 20190403, end: 20190508
  7. ABRAXANE [Suspect]
     Active Substance: PACLITAXEL
     Dosage: 160 MG
     Route: 041
  8. LIPACREON [Concomitant]
     Active Substance: PANCRELIPASE
     Dosage: 450 MG, 3X/DAY
     Route: 048

REACTIONS (32)
  - Blood calcium decreased [Unknown]
  - Red blood cell count decreased [Unknown]
  - Protein total decreased [Unknown]
  - Red cell distribution width increased [Unknown]
  - Eosinophil count decreased [Unknown]
  - Blood creatine phosphokinase decreased [Unknown]
  - Blood cholinesterase decreased [Unknown]
  - C-reactive protein increased [Unknown]
  - Haematocrit decreased [Unknown]
  - Basophil count decreased [Unknown]
  - Fibrin D dimer increased [Unknown]
  - Headache [Unknown]
  - Blood urea increased [Unknown]
  - Lymphocyte count decreased [Unknown]
  - Band neutrophil count decreased [Unknown]
  - Blood chloride decreased [Unknown]
  - Haemolysis [Unknown]
  - Platelet count increased [Unknown]
  - Alanine aminotransferase decreased [Unknown]
  - Dyspnoea [Unknown]
  - Neutrophil count increased [Unknown]
  - Neutrophil count increased [Unknown]
  - Amylase decreased [Unknown]
  - Blood albumin decreased [Unknown]
  - Fibrin degradation products increased [Unknown]
  - Lymphocyte count decreased [Unknown]
  - Aspartate aminotransferase decreased [Unknown]
  - Monocyte count increased [Unknown]
  - Interstitial lung disease [Recovering/Resolving]
  - Haemoglobin decreased [Unknown]
  - White blood cell count increased [Unknown]
  - Prothrombin level decreased [Unknown]

NARRATIVE: CASE EVENT DATE: 20191206
